FAERS Safety Report 13666947 (Version 1)
Quarter: 2017Q2

REPORT INFORMATION
  Report Type: Spontaneous
  Country: US (occurrence: US)
  Receive Date: 20170619
  Receipt Date: 20170619
  Transmission Date: 20170830
  Serious: No
  Sender: FDA-Public Use
  Company Number: US-ROCHE-1468415

PATIENT
  Sex: Female

DRUGS (1)
  1. XELODA [Suspect]
     Active Substance: CAPECITABINE
     Indication: PRODUCT USED FOR UNKNOWN INDICATION
     Route: 065
     Dates: start: 201310, end: 20131220

REACTIONS (4)
  - Oedema [Unknown]
  - Crying [Unknown]
  - Visual impairment [Unknown]
  - Visual impairment [Unknown]

NARRATIVE: CASE EVENT DATE: 201408
